FAERS Safety Report 4521094-9 (Version None)
Quarter: 2004Q4

REPORT INFORMATION
  Report Type: 
  Country: None (occurrence: None)
  Receive Date: 20041203
  Receipt Date: 20041119
  Transmission Date: 20050328
  Serious: Yes (Death)
  Sender: FDA-Public Use
  Company Number: 2004VX000915

PATIENT
  Age: 69 Year
  Sex: Male

DRUGS (2)
  1. FLUOROURACIL [Suspect]
     Indication: RECTAL CANCER
     Dosage: 950 MG; INTRAVENOUS; SEE IMAGE
     Route: 042
     Dates: start: 20040909, end: 20040922
  2. CALCIUM LEVOFOLINATE (CALCIUM LEVOFOLINATE) [Suspect]
     Indication: RECTAL CANCER
     Dosage: 400 MG; INTRAVENOUS; SEE IMAGE
     Route: 042
     Dates: start: 20040909, end: 20040922

REACTIONS (8)
  - DISSEMINATED INTRAVASCULAR COAGULATION [None]
  - LEUKOPENIA [None]
  - MULTI-ORGAN FAILURE [None]
  - POST PROCEDURAL COMPLICATION [None]
  - POST PROCEDURAL DIARRHOEA [None]
  - POSTOPERATIVE ILEUS [None]
  - RESPIRATORY DISORDER [None]
  - SEPTIC SHOCK [None]
